FAERS Safety Report 9159977 (Version 1)
Quarter: 2013Q1

REPORT INFORMATION
  Report Type: Spontaneous
  Country: US (occurrence: US)
  Receive Date: 20130313
  Receipt Date: 20130313
  Transmission Date: 20140127
  Serious: No
  Sender: FDA-Public Use
  Company Number: US-TEVA-391663USA

PATIENT
  Age: 31 Year
  Sex: Female
  Weight: 53.12 kg

DRUGS (2)
  1. PLAN B ONE-STEP [Suspect]
     Indication: POST COITAL CONTRACEPTION
     Dosage: 1.5 MILLIGRAM DAILY;
     Route: 048
     Dates: start: 20130131, end: 20130131
  2. VITAMINS [Concomitant]
     Indication: MEDICAL DIET

REACTIONS (1)
  - Menorrhagia [Recovered/Resolved]
